FAERS Safety Report 5825751-3 (Version None)
Quarter: 2008Q3

REPORT INFORMATION
  Report Type: 
  Country: None (occurrence: None)
  Receive Date: 20080729
  Receipt Date: 20080718
  Transmission Date: 20090109
  Serious: Yes (Disabling)
  Sender: FDA-Public Use
  Company Number: US-MERCK-0806USA08623

PATIENT
  Age: 44 Year
  Sex: Male

DRUGS (4)
  1. ISENTRESS [Suspect]
     Indication: ACQUIRED IMMUNODEFICIENCY SYNDROME
     Route: 048
     Dates: start: 20080408
  2. VIRAMUNE [Concomitant]
     Route: 065
  3. EPZICOM [Concomitant]
     Route: 065
  4. DAPSONE [Concomitant]
     Route: 065

REACTIONS (1)
  - MYALGIA [None]
